FAERS Safety Report 14145255 (Version 1)
Quarter: 2017Q4

REPORT INFORMATION
  Report Type: Spontaneous
  Country: US (occurrence: US)
  Receive Date: 20171031
  Receipt Date: 20171031
  Transmission Date: 20180321
  Serious: No
  Sender: FDA-Public Use
  Company Number: US-ABBVIE-16P-163-1798445-00

PATIENT
  Sex: Female

DRUGS (1)
  1. BIAXIN [Suspect]
     Active Substance: CLARITHROMYCIN
     Indication: INFECTION
     Dosage: THERAPY COMPLETED
     Route: 048
     Dates: start: 201611, end: 20161128

REACTIONS (1)
  - Dysgeusia [Not Recovered/Not Resolved]

NARRATIVE: CASE EVENT DATE: 201611
